FAERS Safety Report 11584081 (Version 1)
Quarter: 2015Q4

REPORT INFORMATION
  Report Type: Spontaneous
  Country: US (occurrence: US)
  Receive Date: 20151001
  Receipt Date: 20151001
  Transmission Date: 20160304
  Serious: Yes (Other)
  Sender: FDA-Public Use
  Company Number: US-BAYER-2015-431429

PATIENT
  Age: 66 Year
  Sex: Male

DRUGS (8)
  1. ORLISTAT [Concomitant]
     Active Substance: ORLISTAT
     Indication: MEDICAL DIET
     Dosage: 60 MG, QD
     Dates: start: 201508
  2. ALEVE [Suspect]
     Active Substance: NAPROXEN SODIUM
     Indication: PAIN
     Dosage: 220 MG, BID
     Dates: start: 2015
  3. IBUPROFEN. [Concomitant]
     Active Substance: IBUPROFEN
     Indication: PAIN
     Dosage: 200 MG, BID
     Dates: start: 201412
  4. ORLISTAT [Concomitant]
     Active Substance: ORLISTAT
     Indication: MEDICAL DIET
     Dosage: 60 MG, QD
     Dates: end: 201505
  5. ALEVE [Suspect]
     Active Substance: NAPROXEN SODIUM
     Indication: DISCOMFORT
     Dosage: 220 MG, TID
     Dates: start: 2015
  6. ORLISTAT [Concomitant]
     Active Substance: ORLISTAT
     Indication: MEDICAL DIET
     Dosage: 60 MG, BID
     Dates: start: 201508
  7. IBUPROFEN. [Concomitant]
     Active Substance: IBUPROFEN
     Indication: DISCOMFORT
     Dosage: 400 MG, QD
     Dates: start: 201412
  8. ORLISTAT [Concomitant]
     Active Substance: ORLISTAT
     Indication: MEDICAL DIET
     Dosage: 60 MG, BID
     Dates: end: 201505

REACTIONS (3)
  - Haematochezia [Recovered/Resolved]
  - Gastric ulcer haemorrhage [Recovered/Resolved]
  - Abdominal pain upper [Not Recovered/Not Resolved]

NARRATIVE: CASE EVENT DATE: 201502
